FAERS Safety Report 9870226 (Version 1)
Quarter: 2014Q1

REPORT INFORMATION
  Report Type: Spontaneous
  Country: US (occurrence: None)
  Receive Date: 20140203
  Receipt Date: 20140203
  Transmission Date: 20141002
  Serious: Yes (Death)
  Sender: FDA-Public Use
  Company Number: AUR-APL-2014-00930

PATIENT
  Age: 49 Year
  Sex: Male

DRUGS (6)
  1. AMLODIPINE [Suspect]
     Indication: PRODUCT USED FOR UNKNOWN INDICATION
  2. LISINOPRIL (LISINOPRIL) [Suspect]
  3. BENZONATATE [Suspect]
  4. BENZTROPINE [Suspect]
  5. COCAINE (COCAINE) [Suspect]
  6. TRAZODONE [Suspect]

REACTIONS (1)
  - Death [None]
